FAERS Safety Report 14526060 (Version 2)
Quarter: 2018Q1

REPORT INFORMATION
  Report Type: Spontaneous
  Country: IT (occurrence: IT)
  Receive Date: 20180213
  Receipt Date: 20180312
  Transmission Date: 20180509
  Serious: Yes (Other)
  Sender: FDA-Public Use
  Company Number: IT-PFIZER INC-2018056183

PATIENT
  Age: 70 Year
  Sex: Male

DRUGS (1)
  1. INLYTA [Suspect]
     Active Substance: AXITINIB
     Indication: RENAL CANCER STAGE IV
     Dosage: 10 MG, 1X/DAY
     Route: 048
     Dates: start: 20160714, end: 20170613

REACTIONS (2)
  - Condition aggravated [Recovering/Resolving]
  - Renal failure [Recovering/Resolving]
